FAERS Safety Report 19200101 (Version 1)
Quarter: 2021Q2

REPORT INFORMATION
  Report Type: Spontaneous
  Country: US (occurrence: US)
  Receive Date: 20210430
  Receipt Date: 20210430
  Transmission Date: 20210717
  Serious: Yes (Hospitalization)
  Sender: FDA-Public Use
  Company Number: US-EMCURE PHARMACEUTICALS LTD-2021-EPL-001433

PATIENT
  Age: 62 Year
  Sex: Male

DRUGS (3)
  1. ADENOSINE. [Suspect]
     Active Substance: ADENOSINE
     Indication: SUPRAVENTRICULAR TACHYCARDIA
     Dosage: 6 MILLIGRAM
     Route: 042
  2. THEOPHYLLINE [Suspect]
     Active Substance: THEOPHYLLINE ANHYDROUS
     Indication: PRODUCT USED FOR UNKNOWN INDICATION
  3. ADENOSINE. [Suspect]
     Active Substance: ADENOSINE
     Dosage: 12 MILLIGRAM
     Route: 042

REACTIONS (4)
  - Off label use [Unknown]
  - Supraventricular tachycardia [Recovered/Resolved]
  - Labelled drug-drug interaction issue [Unknown]
  - Treatment failure [Unknown]
